FAERS Safety Report 8159168 (Version 5)
Quarter: 2012Q4

REPORT INFORMATION
  Report Type: 
  Country: JP (occurrence: JP)
  Receive Date: 20110927
  Receipt Date: 20120924
  Transmission Date: 20130627
  Serious: Yes (Life-Threatening)
  Sender: FDA-Public Use
  Company Number: JP-ELI_LILLY_AND_COMPANY-JP201109005676

PATIENT
  Age: 46 Year
  Sex: Male
  Weight: 63.7 kg

DRUGS (13)
  1. ZYPREXA [Suspect]
     Indication: SCHIZOPHRENIA
     Dosage: 5 mg, qd
     Route: 048
     Dates: end: 20110905
  2. ZYPREXA [Suspect]
     Dosage: 10 mg, qd
     Route: 048
     Dates: start: 20110906, end: 20110912
  3. SEROQUEL [Concomitant]
     Indication: SCHIZOPHRENIA
     Dosage: 100 mg, tid
     Route: 048
     Dates: end: 20110905
  4. SEROQUEL [Concomitant]
     Dosage: 200 mg, tid
     Route: 048
     Dates: start: 20110906, end: 20110912
  5. RISPERDAL [Concomitant]
     Indication: SCHIZOPHRENIA
     Dosage: 2 mg, tid
     Route: 048
     Dates: end: 20110905
  6. SELBEX [Concomitant]
     Indication: GASTROINTESTINAL DISORDER
     Dosage: 50 mg, tid
     Route: 048
     Dates: end: 20110913
  7. DEPROMEL [Concomitant]
     Indication: SCHIZOPHRENIA
     Dosage: 25 mg, tid
     Dates: end: 20110913
  8. ARTANE [Concomitant]
     Indication: PROPHYLAXIS
     Dosage: 2 mg, tid
     Route: 048
     Dates: end: 20110913
  9. LEXOTAN [Concomitant]
     Indication: SCHIZOPHRENIA
     Dosage: 5 mg, tid
     Route: 048
     Dates: end: 20110913
  10. ALOSITOL [Concomitant]
     Indication: GOUT
     Dosage: 100 mg, tid
     Route: 048
     Dates: end: 20110912
  11. ROHYPNOL [Concomitant]
     Indication: SCHIZOPHRENIA
     Dosage: 2 mg, qd
     Route: 048
     Dates: end: 20110913
  12. CONTOMIN [Concomitant]
     Indication: SCHIZOPHRENIA
     Dosage: 25 mg, qd
     Route: 048
     Dates: end: 20110913
  13. PYRETHIA [Concomitant]
     Indication: PROPHYLAXIS
     Dosage: 25 mg, qd
     Route: 048
     Dates: end: 20110913

REACTIONS (4)
  - Disseminated intravascular coagulation [Recovering/Resolving]
  - Septic shock [Recovering/Resolving]
  - Acute respiratory distress syndrome [Recovering/Resolving]
  - Neutropenia [Recovering/Resolving]
